FAERS Safety Report 22657986 (Version 1)
Quarter: 2023Q2

REPORT INFORMATION
  Report Type: Report from Study
  Country: US (occurrence: US)
  Receive Date: 20230630
  Receipt Date: 20230630
  Transmission Date: 20230721
  Serious: No
  Sender: FDA-Public Use
  Company Number: US-ACADIA PHARMACEUTICALS INC.-ACA-2023-TRF-002261

PATIENT
  Age: 40 Year
  Sex: Female

DRUGS (8)
  1. DAYBUE [Suspect]
     Active Substance: TROFINETIDE
     Indication: Rett syndrome
     Dosage: 60 MILLILITER, BID
     Route: 048
     Dates: start: 20230605
  2. DAYBUE [Suspect]
     Active Substance: TROFINETIDE
     Dosage: 40 MILLILITER, BID
     Route: 048
  3. DAYBUE [Suspect]
     Active Substance: TROFINETIDE
     Dosage: 20 MILLILITER
     Route: 048
     Dates: start: 20230610
  4. DAYBUE [Suspect]
     Active Substance: TROFINETIDE
     Dosage: 25 MILLILITER
     Route: 048
     Dates: start: 20230614
  5. DAYBUE [Suspect]
     Active Substance: TROFINETIDE
     Dosage: 20 MILLILITER
     Route: 048
  6. DAYBUE [Suspect]
     Active Substance: TROFINETIDE
     Dosage: 60 MILLILITER
     Route: 048
     Dates: end: 20230627
  7. DAYBUE [Suspect]
     Active Substance: TROFINETIDE
     Dosage: UNK
  8. RISPERDAL [Concomitant]
     Active Substance: RISPERIDONE

REACTIONS (8)
  - Skin discolouration [Recovered/Resolved]
  - Pallor [Recovering/Resolving]
  - Dark circles under eyes [Recovering/Resolving]
  - Retching [Recovered/Resolved]
  - Cold sweat [Recovered/Resolved]
  - Treatment noncompliance [Not Recovered/Not Resolved]
  - Diarrhoea [Not Recovered/Not Resolved]
  - Vomiting [Not Recovered/Not Resolved]

NARRATIVE: CASE EVENT DATE: 20230606
